FAERS Safety Report 19679876 (Version 2)
Quarter: 2021Q3

REPORT INFORMATION
  Report Type: Spontaneous
  Country: US (occurrence: US)
  Receive Date: 20210810
  Receipt Date: 20210818
  Transmission Date: 20211014
  Serious: No
  Sender: FDA-Public Use
  Company Number: US-BAYER-2021-188804

PATIENT

DRUGS (1)
  1. ALEVE [Suspect]
     Active Substance: NAPROXEN SODIUM
     Indication: COVID-19

REACTIONS (6)
  - Drug ineffective for unapproved indication [Unknown]
  - Rhinorrhoea [Unknown]
  - Nasal congestion [Unknown]
  - Headache [Unknown]
  - Suspected COVID-19 [Unknown]
  - Oropharyngeal pain [Unknown]

NARRATIVE: CASE EVENT DATE: 2021
